FAERS Safety Report 21942037 (Version 1)
Quarter: 2023Q1

REPORT INFORMATION
  Report Type: Report from Study
  Country: US (occurrence: US)
  Receive Date: 20230202
  Receipt Date: 20230202
  Transmission Date: 20230418
  Serious: Yes (Death)
  Sender: FDA-Public Use
  Company Number: US-IPSEN Group, Research and Development-2023-00003

PATIENT
  Age: 47 Year
  Sex: Female

DRUGS (1)
  1. ONIVYDE [Suspect]
     Active Substance: IRINOTECAN HYDROCHLORIDE
     Indication: Cervix carcinoma
     Dosage: 112 MG, 14 DAYS
     Route: 042

REACTIONS (1)
  - Death [Fatal]
